FAERS Safety Report 5299460-6 (Version None)
Quarter: 2007Q2

REPORT INFORMATION
  Report Type: 
  Country: None (occurrence: None)
  Receive Date: 20070417
  Receipt Date: 20070411
  Transmission Date: 20071010
  Serious: Yes (Hospitalization)
  Sender: FDA-Public Use
  Company Number: DE-ELI_LILLY_AND_COMPANY-DE200704002588

PATIENT
  Age: 25 Year
  Sex: Female

DRUGS (6)
  1. ZYPREXA [Suspect]
     Indication: ACUTE PSYCHOSIS
     Dosage: 20 MG, DAILY (1/D)
     Route: 048
     Dates: start: 20070107, end: 20070115
  2. HALOPERIDOL [Concomitant]
  3. VALIUM [Concomitant]
  4. LORAZEPAM [Concomitant]
  5. PREDNISOLONE [Concomitant]
  6. DICLOFENAC [Concomitant]

REACTIONS (2)
  - EYELID OEDEMA [None]
  - OEDEMA PERIPHERAL [None]
